FAERS Safety Report 8474802-9 (Version None)
Quarter: 2012Q2

REPORT INFORMATION
  Report Type: 
  Country: None (occurrence: None)
  Receive Date: 20120622
  Receipt Date: 20120615
  Transmission Date: 20120825
  Serious: Yes (Hospitalization)
  Sender: FDA-Public Use
  Company Number: 2012SP011827

PATIENT
  Age: 29 Year
  Sex: Female
  Weight: 61.2356 kg

DRUGS (1)
  1. NUVARING [Suspect]
     Indication: CONTRACEPTION
     Dates: start: 20070623, end: 20100310

REACTIONS (5)
  - LUNG DISORDER [None]
  - DEEP VEIN THROMBOSIS [None]
  - ANXIETY [None]
  - CARPAL TUNNEL SYNDROME [None]
  - PULMONARY EMBOLISM [None]
